FAERS Safety Report 25572035 (Version 1)
Quarter: 2025Q3

REPORT INFORMATION
  Report Type: Spontaneous
  Country: US (occurrence: US)
  Receive Date: 20250717
  Receipt Date: 20250717
  Transmission Date: 20251020
  Serious: Yes (Life-Threatening, Hospitalization, Other)
  Sender: PFIZER
  Company Number: US-PFIZER INC-PV202500084686

PATIENT
  Age: 43 Year
  Sex: Male

DRUGS (6)
  1. FENTANYL CITRATE [Interacting]
     Active Substance: FENTANYL CITRATE
     Indication: Sedation
  2. BUSPIRONE [Interacting]
     Active Substance: BUSPIRONE HYDROCHLORIDE
     Indication: Depression
  3. BUSPIRONE [Interacting]
     Active Substance: BUSPIRONE HYDROCHLORIDE
     Indication: Anxiety
  4. PROPOFOL [Concomitant]
     Active Substance: PROPOFOL
     Indication: Sedation
  5. PAROXETINE [Concomitant]
     Active Substance: PAROXETINE
     Indication: Depression
  6. PAROXETINE [Concomitant]
     Active Substance: PAROXETINE
     Indication: Anxiety

REACTIONS (2)
  - Drug interaction [Recovered/Resolved]
  - Serotonin syndrome [Recovered/Resolved]
